FAERS Safety Report 7440925-6 (Version None)
Quarter: 2011Q2

REPORT INFORMATION
  Report Type: 
  Country: None (occurrence: None)
  Receive Date: 20110427
  Receipt Date: 20110418
  Transmission Date: 20111010
  Serious: Yes (Hospitalization)
  Sender: FDA-Public Use
  Company Number: PHHY2011JP13996

PATIENT
  Sex: Male
  Weight: 70 kg

DRUGS (3)
  1. LOXONIN [Concomitant]
     Indication: LUMBAR SPINAL STENOSIS
     Route: 048
  2. VOLTAREN [Suspect]
     Indication: LUMBAR SPINAL STENOSIS
     Dosage: 50 MG, PER TIME
     Route: 054
     Dates: start: 20090301, end: 20090301
  3. VALTREX [Suspect]
     Indication: HERPES ZOSTER
     Dosage: 1000 MG, TID
     Route: 048
     Dates: start: 20090311, end: 20090312

REACTIONS (4)
  - RENAL FAILURE ACUTE [None]
  - EATING DISORDER [None]
  - RENAL IMPAIRMENT [None]
  - DEHYDRATION [None]
